FAERS Safety Report 18941032 (Version 1)
Quarter: 2021Q1

REPORT INFORMATION
  Report Type: Spontaneous
  Country: US (occurrence: US)
  Receive Date: 20210224
  Receipt Date: 20210224
  Transmission Date: 20210420
  Serious: No
  Sender: FDA-Public Use
  Company Number: None

PATIENT
  Age: 18 Year
  Weight: 121 kg

DRUGS (2)
  1. METHYLPHENIDATE 36MG [Suspect]
     Active Substance: METHYLPHENIDATE
     Route: 048
  2. FOCALIN XR [Suspect]
     Active Substance: DEXMETHYLPHENIDATE HYDROCHLORIDE
     Route: 048
     Dates: start: 2008, end: 20100215

REACTIONS (2)
  - Aggression [None]
  - Drug ineffective [None]

NARRATIVE: CASE EVENT DATE: 20080625
